FAERS Safety Report 5065418-5 (Version None)
Quarter: 2006Q3

REPORT INFORMATION
  Report Type: 
  Country: None (occurrence: None)
  Receive Date: 20060707
  Receipt Date: 20051011
  Transmission Date: 20061208
  Serious: Yes (Hospitalization)
  Sender: FDA-Public Use
  Company Number: SUS1-2005-00774

PATIENT
  Age: 40 Year
  Sex: Male

DRUGS (2)
  1. PENTASA [Suspect]
     Indication: COLITIS ULCERATIVE
     Dosage: 3000 MG
     Dates: start: 20000101, end: 20050701
  2. PREDNISOLONE [Concomitant]

REACTIONS (1)
  - PANCREATITIS ACUTE [None]
